FAERS Safety Report 23823338 (Version 1)
Quarter: 2024Q2

REPORT INFORMATION
  Report Type: Spontaneous
  Country: DE (occurrence: None)
  Receive Date: 20240507
  Receipt Date: 20240507
  Transmission Date: 20240716
  Serious: Yes (Hospitalization, Other)
  Sender: FDA-Public Use
  Company Number: DE-ROCHE-3553248

PATIENT
  Age: 75 Year
  Sex: Female

DRUGS (1)
  1. OCREVUS [Suspect]
     Active Substance: OCRELIZUMAB
     Indication: Product used for unknown indication
     Dosage: LAST OCREVUS INFUSION ON //AUG/2022
     Route: 065

REACTIONS (4)
  - Fall [Unknown]
  - Immobile [Unknown]
  - Hepatic cirrhosis [Unknown]
  - Ascites [Unknown]

NARRATIVE: CASE EVENT DATE: 20230128
